FAERS Safety Report 5892196-X (Version None)
Quarter: 2008Q3

REPORT INFORMATION
  Report Type: 
  Country: None (occurrence: None)
  Receive Date: 20080918
  Receipt Date: 20080903
  Transmission Date: 20090109
  Serious: Yes (Hospitalization, Other)
  Sender: FDA-Public Use
  Company Number: 2008S1016040

PATIENT
  Age: 50 Year
  Sex: Female

DRUGS (5)
  1. ALENDRONIC ACID (ALENDRONIC ACID) [Suspect]
     Indication: OSTEOPOROSIS
     Dosage: 20 MG
     Dates: start: 20070202, end: 20070301
  2. CO-CODAMOL (PANADEINE CO) [Concomitant]
  3. DIAZEPAM (DIAZEPAM) [Concomitant]
  4. DICLOFENAC SODIUM [Concomitant]
  5. PREMARIN [Concomitant]

REACTIONS (1)
  - DYSPNOEA [None]
